FAERS Safety Report 18153511 (Version 2)
Quarter: 2020Q3

REPORT INFORMATION
  Report Type: Report from Study
  Country: BR (occurrence: BR)
  Receive Date: 20200816
  Receipt Date: 20200821
  Transmission Date: 20201103
  Serious: Yes (Life-Threatening, Other)
  Sender: FDA-Public Use
  Company Number: NVSC2020BR220897

PATIENT
  Age: 63 Year
  Sex: Male
  Weight: 60 kg

DRUGS (3)
  1. VOTRIENT [Suspect]
     Active Substance: PAZOPANIB HYDROCHLORIDE
     Dosage: 800 MG
     Route: 065
     Dates: start: 201907
  2. VOTRIENT [Suspect]
     Active Substance: PAZOPANIB HYDROCHLORIDE
     Indication: RENAL CANCER METASTATIC
     Dosage: UNK
     Route: 065
     Dates: start: 201906
  3. VOTRIENT [Suspect]
     Active Substance: PAZOPANIB HYDROCHLORIDE
     Dosage: 800 MG, QD
     Route: 065
     Dates: start: 201907

REACTIONS (26)
  - Metastases to nasal sinuses [Unknown]
  - Neoplasm progression [Not Recovered/Not Resolved]
  - Hair colour changes [Recovering/Resolving]
  - Dysgeusia [Not Recovered/Not Resolved]
  - Gingival bleeding [Recovered/Resolved]
  - Anosmia [Unknown]
  - Feeding disorder [Not Recovered/Not Resolved]
  - Fear [Recovered/Resolved]
  - Gingival hypertrophy [Recovered/Resolved]
  - Renal pain [Unknown]
  - Abdominal discomfort [Recovered/Resolved]
  - Malaise [Recovered/Resolved]
  - Hypoaesthesia oral [Recovered/Resolved]
  - Gingival swelling [Not Recovered/Not Resolved]
  - Renal cancer metastatic [Unknown]
  - Gingival cancer [Unknown]
  - Ageusia [Recovering/Resolving]
  - Emotional disorder [Recovered/Resolved]
  - Second primary malignancy [Unknown]
  - Metastasis [Recovered/Resolved]
  - Malignant neoplasm progression [Unknown]
  - Gingival discomfort [Recovered/Resolved]
  - Decreased appetite [Not Recovered/Not Resolved]
  - Skin exfoliation [Recovered/Resolved]
  - Product dose omission issue [Unknown]
  - Anxiety [Unknown]

NARRATIVE: CASE EVENT DATE: 201907
